FAERS Safety Report 16676157 (Version 1)
Quarter: 2019Q3

REPORT INFORMATION
  Report Type: Spontaneous
  Country: DE (occurrence: DE)
  Receive Date: 20190807
  Receipt Date: 20190807
  Transmission Date: 20191004
  Serious: Yes (Congenital Anomaly)
  Sender: FDA-Public Use
  Company Number: DE-009507513-1907DEU016587

PATIENT
  Sex: Male

DRUGS (13)
  1. L-THYROXIN [Concomitant]
     Active Substance: LEVOTHYROXINE SODIUM
     Indication: AUTOIMMUNE THYROIDITIS
     Dosage: 100 [?G/D ]
     Route: 064
     Dates: start: 20181002, end: 20190213
  2. ONDANSETRON [Concomitant]
     Active Substance: ONDANSETRON
     Indication: NAUSEA
     Dosage: 8 [MG/D ]
     Route: 064
     Dates: start: 20180922, end: 20181202
  3. FOLIC ACID. [Concomitant]
     Active Substance: FOLIC ACID
     Indication: VITAMIN SUPPLEMENTATION
     Route: 064
     Dates: start: 20190208, end: 20190208
  4. TAVOR (LORAZEPAM) [Concomitant]
     Active Substance: LORAZEPAM
     Indication: RESTLESSNESS
     Route: 064
     Dates: start: 20181002, end: 20181127
  5. HALDOL [Concomitant]
     Active Substance: HALOPERIDOL
     Indication: ANXIETY
     Route: 064
     Dates: start: 20181002, end: 20181127
  6. METHADONE HYDROCHLORIDE. [Concomitant]
     Active Substance: METHADONE HYDROCHLORIDE
     Indication: NAUSEA
     Route: 064
     Dates: start: 20180925, end: 20190213
  7. ASCORBIC ACID (+) ZINC (UNSPECIFIED) [Concomitant]
     Indication: PRODUCT USED FOR UNKNOWN INDICATION
     Route: 064
     Dates: start: 20181002, end: 20190108
  8. PANTOPRAZOLE [Concomitant]
     Active Substance: PANTOPRAZOLE
     Indication: PRODUCT USED FOR UNKNOWN INDICATION
     Dosage: 40 [MG/D ]
     Route: 064
     Dates: start: 20181002, end: 20181127
  9. DULCOLAX NOS [Concomitant]
     Active Substance: BISACODYL OR DOCUSATE SODIUM
     Indication: PRODUCT USED FOR UNKNOWN INDICATION
     Route: 064
     Dates: start: 20181002, end: 20190213
  10. VIGANTOLETTEN [Concomitant]
     Active Substance: CHOLECALCIFEROL
     Indication: PRODUCT USED FOR UNKNOWN INDICATION
     Route: 064
     Dates: start: 20181002, end: 20190213
  11. METOCLOPRAMIDE HYDROCHLORIDE. [Concomitant]
     Active Substance: METOCLOPRAMIDE HYDROCHLORIDE
     Indication: NAUSEA
     Dosage: 20 [MG/D ] 2 SEPARATED DOSES
     Route: 064
     Dates: start: 20180922, end: 20181202
  12. TEMOZOLOMIDE. [Suspect]
     Active Substance: TEMOZOLOMIDE
     Indication: ANAPLASTIC OLIGODENDROGLIOMA
     Dosage: 320 [MG/D ]/ 07/18 STARTING 6 CYCLES 5/28 DAYS, INITIAL 150MG/QM, THEN 200MG/QM
     Route: 064
     Dates: start: 20180922, end: 20181202
  13. ALBUTEROL. [Concomitant]
     Active Substance: ALBUTEROL
     Indication: PRODUCT USED FOR UNKNOWN INDICATION
     Route: 064
     Dates: start: 20181002, end: 20190108

REACTIONS (11)
  - Pyelocaliectasis [Not Recovered/Not Resolved]
  - Skeletal dysplasia [Not Recovered/Not Resolved]
  - Foetal exposure during pregnancy [Unknown]
  - Syndactyly [Not Recovered/Not Resolved]
  - Hypotelorism of orbit [Not Recovered/Not Resolved]
  - Adactyly [Not Recovered/Not Resolved]
  - Brachydactyly [Not Recovered/Not Resolved]
  - Microcephaly [Not Recovered/Not Resolved]
  - Microphthalmos [Not Recovered/Not Resolved]
  - Renal dysplasia [Not Recovered/Not Resolved]
  - Hygroma colli [Not Recovered/Not Resolved]
